FAERS Safety Report 19295196 (Version 1)
Quarter: 2021Q2

REPORT INFORMATION
  Report Type: Spontaneous
  Country: US (occurrence: US)
  Receive Date: 20210524
  Receipt Date: 20210524
  Transmission Date: 20210717
  Serious: Yes (Other)
  Sender: FDA-Public Use
  Company Number: US-SAOL THERAPEUTICS-2021SAO00099

PATIENT
  Age: 51 Year
  Sex: Male
  Weight: 63.49 kg

DRUGS (23)
  1. ASPIRIN. [Concomitant]
     Active Substance: ASPIRIN
     Dosage: 81 MG
  2. LEVOTHYROXINE. [Concomitant]
     Active Substance: LEVOTHYROXINE
     Dosage: 112 ?G, 1X/DAY IN A.M.
  3. CITALOPRAM [Concomitant]
     Active Substance: CITALOPRAM HYDROBROMIDE
     Dosage: 25 MG, 1X/DAY
  4. METOPROLOL. [Concomitant]
     Active Substance: METOPROLOL
     Dosage: 25 MG
  5. VITAMIN D3 [Concomitant]
     Active Substance: CHOLECALCIFEROL
     Dosage: UNK, 1X/DAY IN MORNING
  6. VITAMIN B12 [Concomitant]
     Active Substance: CYANOCOBALAMIN
  7. BACLOFEN. [Suspect]
     Active Substance: BACLOFEN
     Dosage: 375 ?G, \DAY
     Route: 037
     Dates: start: 20201015, end: 20201019
  8. BACLOFEN. [Suspect]
     Active Substance: BACLOFEN
     Dosage: 249 ?G, \DAY
     Route: 037
     Dates: start: 20201019, end: 20201030
  9. BACLOFEN. [Suspect]
     Active Substance: BACLOFEN
     Dosage: 199 ?G, \DAY
     Dates: start: 20201030, end: 20201203
  10. LEVETIRACETAM (KEPPRA GENERIC) [Concomitant]
     Dosage: 500 MG, 2X/DAY
  11. BACLOFEN. [Suspect]
     Active Substance: BACLOFEN
     Dosage: 850 ?G, \DAY
     Route: 037
     Dates: start: 20201006, end: 20201012
  12. BACLOFEN. [Suspect]
     Active Substance: BACLOFEN
     Dosage: 299 ?G, \DAY
     Route: 037
     Dates: start: 20201203, end: 20201215
  13. BACLOFEN. [Suspect]
     Active Substance: BACLOFEN
     Dosage: 450 ?G, \DAY
     Route: 037
     Dates: start: 20201215, end: 20210112
  14. BACLOFEN. [Suspect]
     Active Substance: BACLOFEN
     Dosage: 798 ?G, \DAY
     Route: 037
     Dates: start: 20210112, end: 20210222
  15. LANSOPRAZOLE. [Concomitant]
     Active Substance: LANSOPRAZOLE
     Dosage: 30 MG
  16. BACLOFEN. [Suspect]
     Active Substance: BACLOFEN
     Indication: MUSCLE SPASTICITY
     Dosage: 400 ?G, \DAY
     Route: 037
     Dates: start: 20200923, end: 20201006
  17. BACLOFEN. [Suspect]
     Active Substance: BACLOFEN
     Dosage: 550 ?G, \DAY
     Route: 037
     Dates: start: 20201012, end: 20201015
  18. BACLOFEN. [Suspect]
     Active Substance: BACLOFEN
     Dosage: 450 ?G, \DAY
     Route: 037
     Dates: start: 20210222
  19. TESTOSTERONE. [Concomitant]
     Active Substance: TESTOSTERONE
     Route: 061
  20. CALCIUM WITH VITAMIN D3 [Concomitant]
     Active Substance: CALCIUM CARBONATE\CHOLECALCIFEROL
     Dosage: 600 UNK
  21. BACLOFEN. [Concomitant]
     Active Substance: BACLOFEN
     Dosage: 10 MG, AS NEEDED
     Route: 048
  22. VITAMIN C [Concomitant]
     Active Substance: ASCORBIC ACID
     Dosage: 500 MG
  23. PRAVASTATIN. [Concomitant]
     Active Substance: PRAVASTATIN
     Dosage: 10 MG, 1X/DAY

REACTIONS (4)
  - Muscle rigidity [Recovering/Resolving]
  - Lower limb fracture [Unknown]
  - Gait disturbance [Recovering/Resolving]
  - Road traffic accident [Recovered/Resolved]

NARRATIVE: CASE EVENT DATE: 201909
